FAERS Safety Report 5954224-2 (Version None)
Quarter: 2008Q4

REPORT INFORMATION
  Report Type: 
  Country: None (occurrence: None)
  Receive Date: 20081117
  Receipt Date: 20081106
  Transmission Date: 20090506
  Serious: Yes (Disabling, Other)
  Sender: FDA-Public Use
  Company Number: AU-WYE-G02523808

PATIENT
  Sex: Male

DRUGS (5)
  1. EFFEXOR XR [Suspect]
     Indication: DEPRESSION
     Route: 048
     Dates: start: 20040101
  2. EFFEXOR XR [Suspect]
     Dosage: GRADUALLY INCREASED TO 225 MG DAILY
     Route: 048
  3. EFFEXOR XR [Suspect]
     Dosage: DOSE THEN WENT UP AND DOWN
     Route: 048
  4. EFFEXOR XR [Suspect]
     Dosage: STARTED WITHDRAWING EFEXOR XR 3 MONTHS AGO
     Route: 048
     Dates: start: 20080801, end: 20081031
  5. TRAMADOL HCL [Concomitant]
     Indication: BACK PAIN
     Dosage: UNKNOWN
     Dates: start: 20040101

REACTIONS (14)
  - AMNESIA [None]
  - ANXIETY [None]
  - APATHY [None]
  - CONVULSION [None]
  - DRUG WITHDRAWAL SYNDROME [None]
  - HEADACHE [None]
  - HEAT STROKE [None]
  - IMPAIRED WORK ABILITY [None]
  - INSOMNIA [None]
  - IRRITABILITY [None]
  - NONSPECIFIC REACTION [None]
  - PANIC ATTACK [None]
  - PARAESTHESIA [None]
  - SUICIDAL IDEATION [None]
